FAERS Safety Report 7358560-7 (Version None)
Quarter: 2011Q1

REPORT INFORMATION
  Report Type: 
  Country: None (occurrence: None)
  Receive Date: 20110317
  Receipt Date: 20110307
  Transmission Date: 20110831
  Serious: Yes (Life-Threatening)
  Sender: FDA-Public Use
  Company Number: FR-JNJFOC-20110303326

PATIENT
  Age: 45 Year
  Sex: Male

DRUGS (4)
  1. NEURONTIN [Concomitant]
  2. PREZISTA [Suspect]
     Indication: HIV INFECTION
     Route: 065
     Dates: start: 20101213, end: 20110301
  3. ISENTRESS [Suspect]
     Indication: HIV INFECTION
     Route: 065
  4. NORVIR [Concomitant]

REACTIONS (3)
  - DRUG RASH WITH EOSINOPHILIA AND SYSTEMIC SYMPTOMS [None]
  - SEPSIS [None]
  - CYTOLYTIC HEPATITIS [None]
